FAERS Safety Report 4519964-0 (Version None)
Quarter: 2004Q4

REPORT INFORMATION
  Report Type: 
  Country: None (occurrence: None)
  Receive Date: 20041207
  Receipt Date: 20041025
  Transmission Date: 20050328
  Serious: Yes (Hospitalization)
  Sender: FDA-Public Use
  Company Number: US-MERCK-0410USA03751

PATIENT
  Age: 54 Year
  Sex: Female

DRUGS (7)
  1. VIOXX [Suspect]
     Indication: PAIN MANAGEMENT
     Route: 048
     Dates: start: 20000101, end: 20000101
  2. GLUCOPHAGE [Concomitant]
     Route: 065
  3. ZOLOFT [Concomitant]
     Indication: IRRITABLE BOWEL SYNDROME
     Route: 065
  4. EVISTA [Concomitant]
     Indication: PROPHYLAXIS
     Route: 065
  5. AVANDAMET [Concomitant]
     Route: 065
  6. TRICOR [Concomitant]
     Route: 065
  7. LIPITOR [Concomitant]
     Route: 065

REACTIONS (2)
  - ARTERIOSCLEROSIS [None]
  - NON-CARDIAC CHEST PAIN [None]
